FAERS Safety Report 9790448 (Version 1)
Quarter: 2013Q4

REPORT INFORMATION
  Report Type: Spontaneous
  Country: US (occurrence: US)
  Receive Date: 20131231
  Receipt Date: 20131231
  Transmission Date: 20140711
  Serious: No
  Sender: FDA-Public Use
  Company Number: US-BAYER-2013-158813

PATIENT
  Sex: Female

DRUGS (2)
  1. ALEVE GELCAPS [Suspect]
     Route: 048
  2. ALEVE GELCAPS [Suspect]
     Dosage: 4 DF, UNK
     Route: 048

REACTIONS (1)
  - Extra dose administered [None]
